FAERS Safety Report 16283041 (Version 2)
Quarter: 2019Q2

REPORT INFORMATION
  Report Type: Report from Study
  Country: US (occurrence: US)
  Receive Date: 20190507
  Receipt Date: 20190510
  Transmission Date: 20190711
  Serious: Yes (Life-Threatening, Hospitalization)
  Sender: FDA-Public Use
  Company Number: PHHO2019US004847

PATIENT
  Age: 62 Year
  Sex: Male
  Weight: 94.1 kg

DRUGS (2)
  1. GSK1120212 [Suspect]
     Active Substance: TRAMETINIB
     Indication: HAIRY CELL LEUKAEMIA
     Route: 048
  2. GSK2118436 [Suspect]
     Active Substance: DABRAFENIB
     Indication: HAIRY CELL LEUKAEMIA
     Route: 048

REACTIONS (1)
  - Guillain-Barre syndrome [Recovering/Resolving]

NARRATIVE: CASE EVENT DATE: 20190426
